FAERS Safety Report 6194454-0 (Version None)
Quarter: 2009Q2

REPORT INFORMATION
  Report Type: 
  Country: None (occurrence: None)
  Receive Date: 20090519
  Receipt Date: 20080626
  Transmission Date: 20091009
  Serious: No
  Sender: FDA-Public Use
  Company Number: US-TYCO HEALTHCARE/MALLINCKRODT-T200801073

PATIENT

DRUGS (8)
  1. DEXTROAMPHETAMINE SULFATE EXTENDED RELEASE [Suspect]
     Indication: ATTENTION DEFICIT/HYPERACTIVITY DISORDER
     Dosage: 15 MG, QD (ONE AT QHS)
     Route: 048
     Dates: start: 19950101, end: 20080720
  2. LEVOTHYROXINE SODIUM [Concomitant]
     Indication: HYPOTHYROIDISM
     Dosage: 0.88, QD
     Route: 048
  3. CYTOMEL [Concomitant]
     Dosage: 5 MG, BID
     Route: 048
  4. GEODON                             /01487002/ [Concomitant]
     Dosage: 40 MG, QD (QHS)
     Route: 048
  5. FORTAMET [Concomitant]
     Dosage: 500 MG, QD
     Route: 048
  6. SIMVASTATIN [Concomitant]
     Dosage: 20 MG, QD (HS)
     Route: 048
  7. KLONOPIN [Concomitant]
     Dosage: 2 MG, QD (HS)
     Route: 048
  8. CYMBALTA [Concomitant]
     Dosage: 60 MG, QD (QHS)
     Route: 048

REACTIONS (4)
  - BLOOD PRESSURE INCREASED [None]
  - DRUG EFFECT INCREASED [None]
  - FEELING JITTERY [None]
  - NERVOUSNESS [None]
